FAERS Safety Report 5924781-0 (Version None)
Quarter: 2008Q4

REPORT INFORMATION
  Report Type: 
  Country: None (occurrence: None)
  Receive Date: 20081017
  Receipt Date: 20081001
  Transmission Date: 20090506
  Serious: Yes (Hospitalization, Other)
  Sender: FDA-Public Use
  Company Number: 2008US002299

PATIENT
  Age: 75 Year
  Sex: Male
  Weight: 115.6 kg

DRUGS (2)
  1. AMEVIVE [Suspect]
     Indication: PSORIASIS
     Dosage: 15 MG, WEEKLY, INTRAMUSCULAR
     Route: 030
     Dates: start: 20050214, end: 20050518
  2. AMEVIVE [Suspect]
     Indication: PSORIASIS
     Dosage: 15 MG, WEEKLY, INTRAMUSCULAR
     Route: 030
     Dates: start: 20050525, end: 20050824

REACTIONS (8)
  - CELLULITIS [None]
  - DEHYDRATION [None]
  - ERYTHEMA [None]
  - GASTROENTERITIS [None]
  - HYPERTENSION [None]
  - LYMPHOEDEMA [None]
  - OEDEMA PERIPHERAL [None]
  - TACHYCARDIA [None]
